FAERS Safety Report 5916727-6 (Version None)
Quarter: 2008Q4

REPORT INFORMATION
  Report Type: 
  Country: None (occurrence: None)
  Receive Date: 20081013
  Receipt Date: 20081002
  Transmission Date: 20090506
  Serious: Yes (Other)
  Sender: FDA-Public Use
  Company Number: PT-JNJCH-2008025769

PATIENT
  Age: 5 Year
  Sex: Female

DRUGS (1)
  1. ACTIFED [Suspect]
     Indication: DRUG USE FOR UNKNOWN INDICATION
     Dosage: TEXT:10ML; 12H/12H
     Route: 048

REACTIONS (1)
  - AMPHETAMINES POSITIVE [None]
